FAERS Safety Report 10923345 (Version 1)
Quarter: 2015Q1

REPORT INFORMATION
  Report Type: Spontaneous
  Country: JP (occurrence: JP)
  Receive Date: 20150318
  Receipt Date: 20150318
  Transmission Date: 20150721
  Serious: Yes (Hospitalization)
  Sender: FDA-Public Use
  Company Number: JP-ORION CORPORATION ORION PHARMA-ENT 2014-0238

PATIENT
  Age: 68 Year
  Sex: Male

DRUGS (14)
  1. LASIX [Concomitant]
     Active Substance: FUROSEMIDE
     Route: 065
  2. DOPS [Concomitant]
     Active Substance: DROXIDOPA
     Route: 065
  3. TAKEPRON [Concomitant]
     Active Substance: LANSOPRAZOLE
     Route: 065
  4. COMTAN [Suspect]
     Active Substance: ENTACAPONE
     Dosage: STRENGTH: 100 MG
     Route: 050
  5. YOKUKANSAN [Concomitant]
     Active Substance: HERBALS
     Route: 065
  6. FP [Concomitant]
     Active Substance: SELEGILINE HYDROCHLORIDE
     Route: 065
  7. CERCINE [Concomitant]
     Active Substance: DIAZEPAM
     Route: 065
  8. MAGLAX [Concomitant]
     Active Substance: MAGNESIUM OXIDE
     Route: 065
  9. MADOPAR [Concomitant]
     Active Substance: BENSERAZIDE HYDROCHLORIDE\LEVODOPA
     Route: 065
  10. NAUZELIN [Concomitant]
     Active Substance: DOMPERIDONE
     Route: 065
  11. SENNOSIDE [Concomitant]
     Active Substance: SENNOSIDES
     Route: 065
  12. COMTAN [Suspect]
     Active Substance: ENTACAPONE
     Indication: PARKINSON^S DISEASE
     Dosage: STRENGTH: 100 MG
     Route: 048
     Dates: start: 2011
  13. CILOSTAZOL. [Concomitant]
     Active Substance: CILOSTAZOL
     Route: 065
  14. TRERIEF [Concomitant]
     Active Substance: ZONISAMIDE
     Route: 065

REACTIONS (2)
  - Dysphagia [Not Recovered/Not Resolved]
  - Incorrect route of drug administration [Unknown]

NARRATIVE: CASE EVENT DATE: 20141106
